FAERS Safety Report 24452200 (Version 1)
Quarter: 2024Q4

REPORT INFORMATION
  Report Type: Spontaneous
  Country: US (occurrence: US)
  Receive Date: 20241017
  Receipt Date: 20241017
  Transmission Date: 20250115
  Serious: No
  Sender: SUNOVION
  Company Number: US-UROVANT SCIENCES GMBH-202401-URV-000094

PATIENT
  Age: 72 Year
  Sex: Male

DRUGS (2)
  1. GEMTESA [Suspect]
     Active Substance: VIBEGRON
     Indication: Urinary incontinence
     Dosage: UNK
     Route: 065
     Dates: start: 202110
  2. GEMTESA [Suspect]
     Active Substance: VIBEGRON
     Dosage: UNK, BID
     Route: 065
     Dates: start: 20240122

REACTIONS (4)
  - Urinary incontinence [Not Recovered/Not Resolved]
  - Inappropriate schedule of product administration [Unknown]
  - Overdose [Unknown]
  - Condition aggravated [Unknown]

NARRATIVE: CASE EVENT DATE: 20240122
